FAERS Safety Report 7377924-9 (Version None)
Quarter: 2011Q1

REPORT INFORMATION
  Report Type: 
  Country: None (occurrence: None)
  Receive Date: 20110328
  Receipt Date: 20110323
  Transmission Date: 20110831
  Serious: Yes (Other)
  Sender: FDA-Public Use
  Company Number: FR-ROXANE LABORATORIES, INC.-2011-RO-00400RO

PATIENT
  Age: 2 Month

DRUGS (2)
  1. PROPRANOLOL [Suspect]
     Indication: HAEMANGIOMA
  2. TRIAMCINOLONE [Concomitant]
     Indication: HAEMANGIOMA

REACTIONS (1)
  - DRUG RESISTANCE [None]
